FAERS Safety Report 9211601 (Version 4)
Quarter: 2014Q2

REPORT INFORMATION
  Report Type: Spontaneous
  Country: US (occurrence: US)
  Receive Date: 20130404
  Receipt Date: 20140509
  Transmission Date: 20141212
  Serious: Yes (Hospitalization)
  Sender: FDA-Public Use
  Company Number: US-B.I. PHARMACEUTICALS,INC./RIDGEFIELD-2013-BI-09118BP

PATIENT
  Age: 60 Year
  Sex: Male
  Weight: 79.38 kg

DRUGS (13)
  1. PRADAXA [Suspect]
     Indication: ANTICOAGULANT THERAPY
     Dosage: 300 MG
     Route: 065
     Dates: start: 20110315, end: 20120318
  2. PRADAXA [Suspect]
     Indication: ATRIAL FIBRILLATION
  3. ADVAIR [Concomitant]
     Dosage: 1 PUF
     Route: 065
  4. VALIUM [Concomitant]
     Indication: NERVOUSNESS
     Dosage: 10 MG
     Route: 065
  5. PREDNISONE [Concomitant]
     Indication: ASTHMA
     Dosage: 20 MG
     Route: 065
  6. CARDIZEM LA [Concomitant]
     Indication: HYPERTENSION
     Dosage: 360 MG
     Route: 065
  7. SINGULAIR [Concomitant]
     Dosage: 10 MG
     Route: 065
  8. ALBUTEROL MDI [Concomitant]
     Route: 065
  9. FLONASE [Concomitant]
     Route: 065
  10. OXYCONTIN [Concomitant]
     Indication: BACK PAIN
     Route: 065
  11. FLOVENT [Concomitant]
     Route: 065
  12. SPIRIVA [Concomitant]
     Dosage: 18 MCG
     Route: 065
  13. PRILOSEC [Concomitant]
     Dosage: 40 MG
     Route: 065

REACTIONS (4)
  - Gastrointestinal haemorrhage [Unknown]
  - Iron deficiency anaemia [Unknown]
  - Gastrooesophageal reflux disease [Unknown]
  - Chromaturia [Unknown]
